FAERS Safety Report 5328785-0 (Version None)
Quarter: 2007Q2

REPORT INFORMATION
  Report Type: 
  Country: None (occurrence: None)
  Receive Date: 20070516
  Receipt Date: 20070516
  Transmission Date: 20071010
  Serious: Yes (Other)
  Sender: FDA-Public Use
  Company Number: None

PATIENT
  Age: 66 Year
  Sex: Male
  Weight: 68.0396 kg

DRUGS (2)
  1. DITROPAN XL [Suspect]
     Indication: HYPERTONIC BLADDER
     Dosage: 2 TABS DAILY PO
     Route: 048
     Dates: start: 20070401, end: 20070501
  2. DITROPAN XL [Suspect]
     Indication: URGE INCONTINENCE
     Dosage: 2 TABS DAILY PO
     Route: 048
     Dates: start: 20070401, end: 20070501

REACTIONS (2)
  - DRUG INEFFECTIVE [None]
  - THERAPEUTIC RESPONSE UNEXPECTED WITH DRUG SUBSTITUTION [None]
